FAERS Safety Report 8095353-X (Version None)
Quarter: 2012Q1

REPORT INFORMATION
  Report Type: 
  Country: None (occurrence: None)
  Receive Date: 20120131
  Receipt Date: 20120120
  Transmission Date: 20120608
  Serious: Yes (Hospitalization, Disabling)
  Sender: FDA-Public Use
  Company Number: US-BAYER-201041469NA

PATIENT
  Age: 19 Year
  Sex: Female
  Weight: 77.098 kg

DRUGS (25)
  1. DROSPIRENONE AND ETHINYL ESTRADIOL [Suspect]
     Indication: PREMENSTRUAL SYNDROME
  2. YAZ [Suspect]
     Indication: ORAL CONTRACEPTION
     Dosage: UNK
     Route: 048
     Dates: start: 20050330, end: 20081120
  3. YAZ [Suspect]
     Indication: ACNE
  4. YAZ [Suspect]
     Indication: PREMENSTRUAL SYNDROME
  5. TOBRADEX [Concomitant]
     Dosage: UNK
     Route: 048
     Dates: start: 20070622
  6. CHERATUSSIN AC [Concomitant]
     Dosage: UNK
     Route: 048
     Dates: start: 20080718
  7. NEXIUM [Concomitant]
     Dosage: 40 MG, UNK
     Route: 048
     Dates: start: 20070412
  8. NAPROXEN SODIUM [Concomitant]
     Dosage: 550 MG, UNK
     Route: 048
     Dates: start: 20080916
  9. DROSPIRENONE AND ETHINYL ESTRADIOL [Suspect]
     Indication: CONTRACEPTION
     Dosage: UNK
     Route: 048
     Dates: start: 20050330, end: 20081120
  10. XIFAXAN [Concomitant]
     Dosage: 200 MG, UNK
     Route: 048
     Dates: start: 20061020
  11. PROMETHAZINE - CODEINE [CODEINE PHOSPHATE,PROMETHAZINE HYDROCHLORI [Concomitant]
     Dosage: UNK
     Route: 048
     Dates: start: 20080916
  12. YASMIN [Suspect]
     Indication: MENSTRUATION IRREGULAR
  13. YAZ [Suspect]
     Indication: MENSTRUATION IRREGULAR
  14. HYOSCYAMINE [Concomitant]
     Dosage: 0.125 MG, UNK
     Route: 048
     Dates: start: 20070412
  15. NULEV [Concomitant]
     Dosage: 0.125 MG, UNK
     Route: 048
     Dates: start: 20070913
  16. AMOXICILLIN [Concomitant]
     Dosage: 500 MG, UNK
     Route: 048
     Dates: start: 20071120
  17. YASMIN [Suspect]
     Indication: ACNE
     Dosage: UNK
     Route: 048
     Dates: start: 20050330, end: 20081120
  18. FLUCONAZOLE [Concomitant]
     Dosage: 150 MG, UNK
     Route: 048
     Dates: start: 20071112
  19. YASMIN [Suspect]
     Indication: CONTRACEPTION
  20. DROSPIRENONE AND ETHINYL ESTRADIOL [Suspect]
     Indication: MENSTRUATION IRREGULAR
  21. LEVAQUIN [Concomitant]
     Dosage: 500 MG, UNK
     Route: 048
     Dates: start: 20070511
  22. ZELNORM [Concomitant]
     Dosage: 6 MG, UNK
     Route: 048
     Dates: start: 20061020
  23. HYDROCODONE BITARTRATE AND ACETAMINOPHEN [Concomitant]
     Dosage: UNK MG, UNK
     Route: 048
     Dates: start: 20071120
  24. SKELAXIN [Concomitant]
     Dosage: 800 MG, UNK
     Route: 048
     Dates: start: 20080516
  25. YASMIN [Suspect]
     Indication: PREMENSTRUAL SYNDROME

REACTIONS (2)
  - ARTERIAL THROMBOSIS LIMB [None]
  - INJURY [None]
